FAERS Safety Report 18280558 (Version 2)
Quarter: 2020Q4

REPORT INFORMATION
  Report Type: Spontaneous
  Country: GB (occurrence: GB)
  Receive Date: 20200918
  Receipt Date: 20201005
  Transmission Date: 20210113
  Serious: Yes (Death, Hospitalization)
  Sender: FDA-Public Use
  Company Number: GB-ALNYLAM PHARMACEUTICALS, INC.-ALN-2020-001660

PATIENT

DRUGS (1)
  1. ONPATTRO [Suspect]
     Active Substance: PATISIRAN SODIUM
     Indication: HEREDITARY NEUROPATHIC AMYLOIDOSIS
     Dosage: 17 MILLIGRAM, Q3W
     Route: 042
     Dates: start: 20200513

REACTIONS (1)
  - Amyloidosis [Fatal]
